FAERS Safety Report 17594934 (Version 1)
Quarter: 2020Q1

REPORT INFORMATION
  Report Type: Spontaneous
  Country: JP (occurrence: JP)
  Receive Date: 20200328
  Receipt Date: 20200328
  Transmission Date: 20200409
  Serious: Yes (Hospitalization, Other)
  Sender: FDA-Public Use
  Company Number: JP-UCBSA-2020012555

PATIENT
  Age: 2 Year
  Sex: Female

DRUGS (4)
  1. TIPEPIDINE HIBENZATE [Suspect]
     Active Substance: TIPEPIDINE HIBENZATE
     Indication: NASOPHARYNGITIS
     Dosage: UNK, 3X/DAY (TID)
     Route: 048
  2. AMBROXOL HYDROCHLORIDE [Suspect]
     Active Substance: AMBROXOL HYDROCHLORIDE
     Indication: NASOPHARYNGITIS
     Dosage: UNK, 3X/DAY (TID)
     Route: 048
  3. LEVOCETIRIZINE HYDROCHLORIDE [Suspect]
     Active Substance: LEVOCETIRIZINE HYDROCHLORIDE
     Indication: NASOPHARYNGITIS
     Dosage: UNK, 3X/DAY (TID)
     Route: 048
  4. LEVOCETIRIZINE HYDROCHLORIDE [Suspect]
     Active Substance: LEVOCETIRIZINE HYDROCHLORIDE
     Indication: OFF LABEL USE

REACTIONS (9)
  - Product preparation issue [Unknown]
  - Abnormal behaviour [Recovering/Resolving]
  - Altered state of consciousness [Recovered/Resolved]
  - Product communication issue [Unknown]
  - Confusional state [Recovering/Resolving]
  - Drug level increased [Unknown]
  - Off label use [Unknown]
  - Rash [Recovering/Resolving]
  - Toxicity to various agents [Recovering/Resolving]
